FAERS Safety Report 5612322-7 (Version None)
Quarter: 2008Q1

REPORT INFORMATION
  Report Type: 
  Country: None (occurrence: None)
  Receive Date: 20080129
  Receipt Date: 20080116
  Transmission Date: 20080703
  Serious: Yes (Other)
  Sender: FDA-Public Use
  Company Number: CHNY2008GB00613

PATIENT

DRUGS (4)
  1. ACETYLSALICYLIC ACID SRT [Suspect]
  2. WARFARIN SODIUM [Suspect]
  3. DIPYRIDAMOLE [Suspect]
  4. CLOPIDOGREL [Suspect]

REACTIONS (2)
  - ISCHAEMIC STROKE [None]
  - PULMONARY EMBOLISM [None]
